FAERS Safety Report 8381278-9 (Version None)
Quarter: 2012Q2

REPORT INFORMATION
  Report Type: 
  Country: None (occurrence: None)
  Receive Date: 20120523
  Receipt Date: 20120521
  Transmission Date: 20120825
  Serious: Yes (Hospitalization, Other)
  Sender: FDA-Public Use
  Company Number: US-ELI_LILLY_AND_COMPANY-US201004000731

PATIENT
  Sex: Male
  Weight: 81.633 kg

DRUGS (13)
  1. ASPIRIN [Concomitant]
  2. BYETTA [Suspect]
     Dosage: UNK, UNKNOWN
     Route: 065
     Dates: start: 20060101, end: 20090301
  3. PRILOSEC [Concomitant]
     Dosage: 40 MG, QD
  4. MEVACOR [Concomitant]
  5. METFORMIN HCL [Concomitant]
  6. INSULIN [Concomitant]
  7. PERCOCET [Concomitant]
  8. LISINOPRIL [Concomitant]
  9. MULTI-VITAMINS [Concomitant]
  10. LOPRESSOR [Concomitant]
     Dosage: 25 MG, BID
  11. DILAUDID [Concomitant]
  12. ACTOS [Concomitant]
  13. LOVASTATIN [Concomitant]

REACTIONS (3)
  - PANCREATITIS NECROTISING [None]
  - PANCREATITIS ACUTE [None]
  - PANCREATITIS [None]
